FAERS Safety Report 5428223-3 (Version None)
Quarter: 2007Q3

REPORT INFORMATION
  Report Type: 
  Country: None (occurrence: None)
  Receive Date: 20070731
  Receipt Date: 20070524
  Transmission Date: 20080115
  Serious: No
  Sender: FDA-Public Use
  Company Number: US200705007817

PATIENT
  Age: 72 Year
  Sex: Male

DRUGS (4)
  1. BYETTA [Suspect]
     Indication: TYPE 2 DIABETES MELLITUS
     Dosage: 10 UG, 2/D, SUBCUTANEOUS : 5 UG, 2/D, SUBCUTANEOUS
     Route: 058
     Dates: start: 20060316, end: 20060414
  2. BYETTA [Suspect]
     Indication: TYPE 2 DIABETES MELLITUS
     Dosage: 10 UG, 2/D, SUBCUTANEOUS : 5 UG, 2/D, SUBCUTANEOUS
     Route: 058
     Dates: start: 20060415
  3. ACTOS/USA/ (PIOGLITAZONE HYDROCHLORIDE) [Concomitant]
  4. GLUCOVANCE [Concomitant]

REACTIONS (4)
  - ABDOMINAL PAIN LOWER [None]
  - BLOOD GLUCOSE INCREASED [None]
  - GALLBLADDER OPERATION [None]
  - NAUSEA [None]
